FAERS Safety Report 8076072-2 (Version None)
Quarter: 2012Q1

REPORT INFORMATION
  Report Type: 
  Country: None (occurrence: None)
  Receive Date: 20120127
  Receipt Date: 20110707
  Transmission Date: 20120608
  Serious: No
  Sender: FDA-Public Use
  Company Number: US-GLAXOSMITHKLINE-A0936862A

PATIENT
  Sex: Female

DRUGS (4)
  1. LAMICTAL [Suspect]
     Indication: PRODUCT USED FOR UNKNOWN INDICATION
     Dosage: 100MG UNKNOWN
     Route: 065
     Dates: start: 20100821
  2. WELLBUTRIN [Suspect]
     Indication: PRODUCT USED FOR UNKNOWN INDICATION
     Dosage: 150MG UNKNOWN
     Route: 065
     Dates: start: 20101015
  3. ADVAIR DISKUS 100/50 [Concomitant]
  4. VENTOLIN [Concomitant]

REACTIONS (1)
  - THERAPEUTIC RESPONSE UNEXPECTED [None]
